FAERS Safety Report 6927642-3 (Version None)
Quarter: 2010Q3

REPORT INFORMATION
  Report Type: 
  Country: None (occurrence: None)
  Receive Date: 20100816
  Receipt Date: 20100816
  Transmission Date: 20110219
  Serious: Yes (Other)
  Sender: FDA-Public Use
  Company Number: None

PATIENT
  Age: 57 Year
  Sex: Male

DRUGS (1)
  1. MORPHINE [Suspect]
     Indication: PAIN
     Dosage: 6MG
     Dates: start: 20100709, end: 20100709

REACTIONS (3)
  - DROOLING [None]
  - MENTAL STATUS CHANGES [None]
  - URTICARIA [None]
